FAERS Safety Report 11241571 (Version 3)
Quarter: 2015Q3

REPORT INFORMATION
  Report Type: Spontaneous
  Country: BR (occurrence: BR)
  Receive Date: 20150706
  Receipt Date: 20150720
  Transmission Date: 20151125
  Serious: No
  Sender: FDA-Public Use
  Company Number: BR-PFIZER INC-2015222252

PATIENT
  Sex: Female

DRUGS (1)
  1. LYRICA [Suspect]
     Active Substance: PREGABALIN
     Dosage: UNK
     Route: 048
     Dates: start: 20150630

REACTIONS (8)
  - Feeling abnormal [Unknown]
  - Swollen tongue [Unknown]
  - Nausea [Unknown]
  - Sleep disorder [Unknown]
  - Headache [Not Recovered/Not Resolved]
  - Formication [Unknown]
  - Abdominal pain upper [Unknown]
  - Glossodynia [Unknown]

NARRATIVE: CASE EVENT DATE: 2015
